FAERS Safety Report 8297394-6 (Version None)
Quarter: 2012Q2

REPORT INFORMATION
  Report Type: 
  Country: None (occurrence: None)
  Receive Date: 20120419
  Receipt Date: 20120406
  Transmission Date: 20120825
  Serious: Yes (Hospitalization, Other)
  Sender: FDA-Public Use
  Company Number: FR-AMGEN-FRASP2012023110

PATIENT
  Age: 59 Year
  Sex: Female

DRUGS (6)
  1. AUGMENTIN '125' [Suspect]
     Dosage: 3 G, 1X/DAY
     Dates: start: 20120301
  2. ARAVA [Suspect]
     Dosage: UNK
     Dates: start: 20111022, end: 20120301
  3. ENBREL [Suspect]
     Dosage: UNK
     Dates: start: 20111022, end: 20120301
  4. ENBREL [Suspect]
     Indication: RHEUMATOID ARTHRITIS
     Dosage: 50 MG, WEEKLY
     Dates: start: 20110801, end: 20110901
  5. ARAVA [Suspect]
     Dosage: UNK
     Dates: start: 20110501, end: 20110901
  6. PREDNISONE TAB [Suspect]
     Dosage: 40 TO 50 MG DAILY

REACTIONS (5)
  - ABDOMINAL PAIN [None]
  - INFLUENZA [None]
  - DIARRHOEA [None]
  - PNEUMONIA HAEMOPHILUS [None]
  - SIGMOIDITIS [None]
